FAERS Safety Report 6099430-4 (Version None)
Quarter: 2009Q1

REPORT INFORMATION
  Report Type: 
  Country: None (occurrence: None)
  Receive Date: 20090226
  Receipt Date: 20090219
  Transmission Date: 20090719
  Serious: Yes (Hospitalization)
  Sender: FDA-Public Use
  Company Number: 2008SP003791

PATIENT
  Age: 44 Year
  Sex: Female

DRUGS (4)
  1. PEG-INTRON [Suspect]
     Indication: HEPATITIS C
     Dosage: SC; SC;
     Route: 058
     Dates: start: 20071207, end: 20080101
  2. PEG-INTRON [Suspect]
     Indication: HEPATITIS C
     Dosage: SC; SC;
     Route: 058
     Dates: start: 20090130, end: 20090201
  3. RIBAVIRIN [Suspect]
     Indication: HEPATITIS C
     Dosage: PO; PO
     Route: 048
     Dates: start: 20071207, end: 20080101
  4. RIBAVIRIN [Suspect]
     Indication: HEPATITIS C
     Dosage: PO; PO
     Route: 048
     Dates: start: 20090130, end: 20090201

REACTIONS (7)
  - ANAEMIA [None]
  - BLOOD COUNT ABNORMAL [None]
  - GASTRIC HAEMORRHAGE [None]
  - LOSS OF CONSCIOUSNESS [None]
  - REFUSAL OF TREATMENT BY PATIENT [None]
  - VOMITING [None]
  - WHITE BLOOD CELL COUNT DECREASED [None]
